FAERS Safety Report 24073179 (Version 3)
Quarter: 2024Q3

REPORT INFORMATION
  Report Type: Report from Study
  Country: US (occurrence: US)
  Receive Date: 20240710
  Receipt Date: 20240806
  Transmission Date: 20241017
  Serious: No
  Sender: ALEXION PHARMACEUTICALS
  Company Number: US-AstraZeneca-CH-00659121A

PATIENT
  Sex: Male

DRUGS (1)
  1. STRENSIQ [Suspect]
     Active Substance: ASFOTASE ALFA
     Indication: Hypophosphatasia
     Dosage: 190 MILLIGRAM, TIW
     Route: 058
     Dates: start: 20240630

REACTIONS (3)
  - Injection site swelling [Recovered/Resolved]
  - Injection site discomfort [Recovered/Resolved]
  - Injection site pruritus [Recovered/Resolved]
